FAERS Safety Report 5341405-4 (Version None)
Quarter: 2007Q2

REPORT INFORMATION
  Report Type: 
  Country: None (occurrence: None)
  Receive Date: 20070404
  Receipt Date: 20061010
  Transmission Date: 20071010
  Serious: Yes (Other)
  Sender: FDA-Public Use
  Company Number: 2006124500

PATIENT
  Age: 44 Year
  Sex: Male
  Weight: 97.3 kg

DRUGS (3)
  1. GEODON [Suspect]
     Indication: PSYCHOTIC DISORDER
     Dosage: 120 MG (60 MG,2 IN 1 D),ORAL
     Route: 048
     Dates: start: 20060810, end: 20060919
  2. FLUOXETINE [Concomitant]
  3. MINOCYCLINE HCL [Concomitant]

REACTIONS (1)
  - HEPATITIS [None]
